FAERS Safety Report 5041300-4 (Version None)
Quarter: 2006Q2

REPORT INFORMATION
  Report Type: 
  Country: None (occurrence: None)
  Receive Date: 20060623
  Receipt Date: 20060609
  Transmission Date: 20061013
  Serious: Yes (Hospitalization)
  Sender: FDA-Public Use
  Company Number: 226163

PATIENT
  Age: 67 Year
  Sex: Female

DRUGS (3)
  1. NUTROPIN AQ [Suspect]
     Indication: HYPOPITUITARISM
     Dosage: 0.35 MG, 7/WEEK, SUBCUTANEOUS
     Route: 058
     Dates: start: 20050824
  2. FLUDROCORTISONE (FLUDROCORTISONE ACETATE) [Concomitant]
  3. OMEPRAZOLE [Concomitant]

REACTIONS (4)
  - ADRENAL INSUFFICIENCY [None]
  - HYPOTENSION [None]
  - NAUSEA [None]
  - POST PROCEDURAL DIZZINESS [None]
